FAERS Safety Report 5285038-7 (Version None)
Quarter: 2007Q2

REPORT INFORMATION
  Report Type: 
  Country: None (occurrence: None)
  Receive Date: 20070403
  Receipt Date: 20070312
  Transmission Date: 20071010
  Serious: Yes (Other)
  Sender: FDA-Public Use
  Company Number: US-SANOFI-SYNTHELABO-A03200702136

PATIENT
  Sex: Male

DRUGS (8)
  1. DEPAKOTE [Concomitant]
     Indication: DRUG USE FOR UNKNOWN INDICATION
     Route: 065
  2. ZYRTEC [Concomitant]
     Indication: DRUG USE FOR UNKNOWN INDICATION
     Route: 065
  3. ALLEGRA D 24 HOUR [Concomitant]
     Indication: DRUG USE FOR UNKNOWN INDICATION
     Route: 065
  4. LEXAPRO [Concomitant]
     Indication: DRUG USE FOR UNKNOWN INDICATION
     Route: 065
  5. AMBIEN [Suspect]
     Indication: INSOMNIA
     Dosage: 40 TO 50 MGS PER NIGHT UNK
     Route: 048
     Dates: start: 20050201, end: 20050301
  6. AMBIEN [Suspect]
     Indication: ANXIETY
     Dosage: 40 TO 50 MGS PER NIGHT UNK
     Route: 048
     Dates: start: 20050201, end: 20050301
  7. AMBIEN [Suspect]
     Dosage: 30 TO 40 MGS PER NIGHT UNK
     Route: 048
     Dates: start: 20050301
  8. AMBIEN [Suspect]
     Dosage: 30 TO 40 MGS PER NIGHT UNK
     Route: 048
     Dates: start: 20050301

REACTIONS (9)
  - AMNESIA [None]
  - CONFUSIONAL STATE [None]
  - DISORIENTATION [None]
  - FEELING DRUNK [None]
  - INJURY [None]
  - OVERDOSE [None]
  - ROAD TRAFFIC ACCIDENT [None]
  - SLEEP WALKING [None]
  - THINKING ABNORMAL [None]
